FAERS Safety Report 21418848 (Version 1)
Quarter: 2022Q4

REPORT INFORMATION
  Report Type: Spontaneous
  Country: US (occurrence: None)
  Receive Date: 20221005
  Receipt Date: 20221005
  Transmission Date: 20230113
  Serious: Yes (Hospitalization)
  Sender: FDA-Public Use
  Company Number: None

PATIENT
  Age: 29 Year
  Sex: Female
  Weight: 85.28 kg

DRUGS (1)
  1. SUBOXONE [Suspect]
     Active Substance: BUPRENORPHINE HYDROCHLORIDE\NALOXONE HYDROCHLORIDE
     Indication: Drug dependence
     Dosage: OTHER QUANTITY : 8-2 MG TABLET;?FREQUENCY : 3 TIMES A DAY;?
     Route: 060
     Dates: start: 20170418, end: 20170419

REACTIONS (4)
  - Rash [None]
  - Dyspnoea [None]
  - Dizziness [None]
  - Hypersensitivity [None]

NARRATIVE: CASE EVENT DATE: 20170418
